FAERS Safety Report 6237260-0 (Version None)
Quarter: 2009Q2

REPORT INFORMATION
  Report Type: 
  Country: None (occurrence: None)
  Receive Date: 20090619
  Receipt Date: 20090616
  Transmission Date: 20091009
  Serious: Yes (Other)
  Sender: FDA-Public Use
  Company Number: US-RB-017014-09

PATIENT
  Age: 28 Year
  Sex: Female

DRUGS (2)
  1. SUBUTEX [Suspect]
     Route: 060
     Dates: start: 20071201
  2. SUBOXONE [Suspect]
     Route: 060
     Dates: start: 20070101, end: 20071201

REACTIONS (5)
  - DRUG EXPOSURE DURING PREGNANCY [None]
  - HEADACHE [None]
  - STILLBIRTH [None]
  - URTICARIA [None]
  - VOMITING [None]
